FAERS Safety Report 10207726 (Version 1)
Quarter: 2014Q2

REPORT INFORMATION
  Report Type: Spontaneous
  Country: US (occurrence: US)
  Receive Date: 20140530
  Receipt Date: 20140530
  Transmission Date: 20141212
  Serious: No
  Sender: FDA-Public Use
  Company Number: US-GLAXOSMITHKLINE-A1056586A

PATIENT
  Age: 15 Year
  Sex: Female

DRUGS (1)
  1. VENTOLIN [Suspect]
     Indication: RESPIRATORY TRACT CONGESTION
     Route: 055

REACTIONS (3)
  - Increased upper airway secretion [Not Recovered/Not Resolved]
  - Dysphonia [Unknown]
  - Aphonia [Unknown]
